FAERS Safety Report 5883210-6 (Version None)
Quarter: 2008Q3

REPORT INFORMATION
  Report Type: 
  Country: None (occurrence: None)
  Receive Date: 20080915
  Receipt Date: 20080902
  Transmission Date: 20090109
  Serious: No
  Sender: FDA-Public Use
  Company Number: GB-DENTSPLY-2008-0081-EUR

PATIENT
  Age: 19 Year
  Sex: Male

DRUGS (6)
  1. XYLOCAINE [Suspect]
  2. IBUPROFEN [Suspect]
     Route: 048
  3. CYCLOBENZAPRINE HCL [Suspect]
     Route: 048
  4. CHLORPHENIRAMINE MALEATE [Suspect]
  5. PHENYLPROPANOLAMINE HCL [Suspect]
  6. PHENYTOIN [Suspect]

REACTIONS (3)
  - METABOLIC ACIDOSIS [None]
  - OVERDOSE [None]
  - TACHYCARDIA [None]
